FAERS Safety Report 23965532 (Version 1)
Quarter: 2024Q2

REPORT INFORMATION
  Report Type: Spontaneous
  Country: US (occurrence: US)
  Receive Date: 20240612
  Receipt Date: 20240612
  Transmission Date: 20240715
  Serious: No
  Sender: FDA-Public Use
  Company Number: US-JNJFOC-20240588640

PATIENT
  Age: 9 Decade
  Sex: Female

DRUGS (1)
  1. WOMENS ROGAINE [Suspect]
     Active Substance: MINOXIDIL
     Indication: Alopecia
     Dosage: MOST OF THE TIME ONLY USE ONCE AT NIGHT + USED HALFWAY OF THE DROPPER
     Route: 061
     Dates: start: 202310

REACTIONS (4)
  - Application site pruritus [Recovering/Resolving]
  - Application site erythema [Recovering/Resolving]
  - Inappropriate schedule of product administration [Unknown]
  - Underdose [Unknown]

NARRATIVE: CASE EVENT DATE: 20231001
